FAERS Safety Report 12795240 (Version 4)
Quarter: 2016Q4

REPORT INFORMATION
  Report Type: Spontaneous
  Country: US (occurrence: US)
  Receive Date: 20160929
  Receipt Date: 20161209
  Transmission Date: 20170207
  Serious: Yes (Hospitalization)
  Sender: FDA-Public Use
  Company Number: US-PFIZER INC-2016454081

PATIENT
  Age: 60 Year
  Sex: Female
  Weight: 65.4 kg

DRUGS (30)
  1. XANAX [Concomitant]
     Active Substance: ALPRAZOLAM
     Indication: GENERALISED ANXIETY DISORDER
     Dosage: 0.25 MG, AS NEEDED (FOUR TIMES DAILY )
     Route: 048
  2. WELLBUTRIN SR [Concomitant]
     Active Substance: BUPROPION HYDROCHLORIDE
     Indication: DEPRESSION
     Dosage: 200 MG, 2X/DAY
     Route: 048
  3. VITAMIN B12 [Concomitant]
     Active Substance: CYANOCOBALAMIN
     Indication: METABOLIC SURGERY
     Dosage: 1000 UG, DAILY
     Route: 060
  4. MELATONIN [Concomitant]
     Active Substance: MELATONIN
     Dosage: 5 MG, 1X/DAY (AT BEDTIME)
     Route: 048
  5. NEURONTIN [Concomitant]
     Active Substance: GABAPENTIN
     Indication: AUTONOMIC NEUROPATHY
     Dosage: 800 MG, 3X/DAY
     Route: 048
  6. NORCO [Concomitant]
     Active Substance: ACETAMINOPHEN\HYDROCODONE BITARTRATE
     Indication: PAIN
     Dosage: 1-2 TABS EVERY 6 HOURS AS NEEDED
     Route: 048
  7. ALBUTEROL. [Concomitant]
     Active Substance: ALBUTEROL
     Indication: ASTHMA
     Dosage: 0.083 %, AS NEEDED (1 AMPULE VIA NEBULIZER EVERY 4 TO 6 HOURS)
  8. CALCIUM CITRATE +D [Concomitant]
     Active Substance: CALCIUM CITRATE\VITAMIN D
     Dosage: 2 DF, 2X/DAY
     Route: 048
  9. XYZAL [Concomitant]
     Active Substance: LEVOCETIRIZINE DIHYDROCHLORIDE
     Indication: HYPERSENSITIVITY
     Dosage: 5 MG, DAILY
     Route: 048
  10. LEVOTHYROXINE. [Concomitant]
     Active Substance: LEVOTHYROXINE
     Indication: HYPOTHYROIDISM
     Dosage: 50 UG, DAILY
     Route: 048
  11. BACTROBAN [Concomitant]
     Active Substance: MUPIROCIN\MUPIROCIN CALCIUM
     Dosage: 1 APPLICATION TO AFFECTED AREA(S)) THREE TIMES DAILY
     Route: 045
  12. FLONASE [Concomitant]
     Active Substance: FLUTICASONE PROPIONATE
     Dosage: 100 UG, 2X/DAY (1 SPRAY IN EACH NOSTRIL 2 TIMES A DAY)
     Route: 045
  13. BIOTIN [Concomitant]
     Active Substance: BIOTIN
     Route: 048
  14. KEFLEX [Concomitant]
     Active Substance: CEPHALEXIN
     Dosage: 500 MG, 4X/DAY
     Route: 048
  15. LYRICA [Suspect]
     Active Substance: PREGABALIN
     Dosage: 75 MG, 3X/DAY
     Route: 048
     Dates: start: 20161103
  16. XANAX [Concomitant]
     Active Substance: ALPRAZOLAM
     Indication: RESTLESSNESS
  17. LIPITOR [Concomitant]
     Active Substance: ATORVASTATIN CALCIUM
     Indication: DYSLIPIDAEMIA
     Dosage: 20 MG, DAILY
     Route: 048
  18. COENZYME Q10 [Concomitant]
     Active Substance: UBIDECARENONE
     Dosage: 100 MG, DAILY
     Route: 048
  19. DSS [Concomitant]
     Active Substance: DEXTRAN SULFATE SODIUM SALT
     Dosage: 100 MG, 2X/DAY
     Route: 048
  20. FERROUS SULFATE. [Concomitant]
     Active Substance: FERROUS SULFATE
     Indication: ANAEMIA
     Dosage: 325 MG, 2X/DAY, (WITH MEALS)
     Route: 048
  21. LEVSIN SL [Concomitant]
     Active Substance: HYOSCYAMINE SULFATE
     Indication: DYSPHAGIA
     Dosage: 0.125 MG, AS NEEDED,(UNDER THE TONGUE EVERY 4 HOURS )
     Route: 060
  22. LYRICA [Suspect]
     Active Substance: PREGABALIN
     Indication: FIBROMYALGIA
     Dosage: 75 MG, 3X/DAY
     Route: 048
     Dates: start: 2014
  23. XANAX [Concomitant]
     Active Substance: ALPRAZOLAM
     Indication: ANXIETY
  24. FLONASE [Concomitant]
     Active Substance: FLUTICASONE PROPIONATE
     Indication: RHINITIS ALLERGIC
     Dosage: 200 UG, 1X/DAY, (2 SPRAYS IN EACH NOSTRIL ONCE DAILY )
     Route: 045
  25. PROAIR HFA [Concomitant]
     Active Substance: ALBUTEROL SULFATE
     Indication: ASTHMA
     Dosage: 2 DF, EVERY 4 TO 6 HOURS AS NEEDED (2 PUFFS)
     Route: 055
  26. VITAMIN D3 [Concomitant]
     Active Substance: CHOLECALCIFEROL
     Dosage: 2000 IU, DAILY
     Route: 048
  27. EPIPEN [Concomitant]
     Active Substance: EPINEPHRINE
     Indication: HYPOTHYROIDISM
     Dosage: 0.3 MG, UNK, (AS DIRECTED)
     Route: 030
  28. GLUCOSAMINE [Concomitant]
     Active Substance: GLUCOSAMINE
     Dosage: 1500 MG, 2X/DAY
     Route: 048
  29. MOBIC [Concomitant]
     Active Substance: MELOXICAM
     Indication: OSTEOARTHRITIS
     Dosage: 15 MG, DAILY, (WITH A MEAL)
     Route: 048
  30. BACTROBAN [Concomitant]
     Active Substance: MUPIROCIN\MUPIROCIN CALCIUM
     Indication: CELLULITIS
     Dosage: APPLY 1 APPLICATION TO BOTH NOSTRILS TWICE DAILY
     Route: 045

REACTIONS (1)
  - Spinal fracture [Not Recovered/Not Resolved]
